FAERS Safety Report 16461130 (Version 3)
Quarter: 2019Q4

REPORT INFORMATION
  Report Type: Report from Study
  Country: None (occurrence: TR)
  Receive Date: 20190621
  Receipt Date: 20191113
  Transmission Date: 20200122
  Serious: Yes (Hospitalization)
  Sender: FDA-Public Use
  Company Number: TR-ABBVIE-19S-161-2817704-00

PATIENT
  Age: 74 Year
  Sex: Female
  Weight: 65 kg

DRUGS (10)
  1. DUODOPA [Suspect]
     Active Substance: CARBIDOPA\LEVODOPA
     Indication: PARKINSON^S DISEASE
     Dosage: MD(ML):6.5 CD(ML):2.8 ED(ML):1.00
     Route: 050
     Dates: start: 20190527, end: 20190616
  2. DOPADEX [Concomitant]
     Indication: PARKINSON^S DISEASE
     Route: 048
     Dates: start: 20190201
  3. CIPRASID [Concomitant]
     Indication: URINARY TRACT INFECTION
     Route: 048
     Dates: start: 20190609
  4. PEXA [Concomitant]
     Indication: PARKINSON^S DISEASE
  5. DUODOPA [Suspect]
     Active Substance: CARBIDOPA\LEVODOPA
     Dosage: MD(ML):7.00CD(ML):3.6 ED(ML):1.00
     Route: 050
     Dates: start: 20190616
  6. FOLBIOL [Concomitant]
     Active Substance: FOLIC ACID
     Indication: PARKINSON^S DISEASE
     Route: 048
     Dates: start: 20190601
  7. DUODOPA [Suspect]
     Active Substance: CARBIDOPA\LEVODOPA
     Route: 050
  8. TOLVON [Concomitant]
     Active Substance: MIANSERIN
     Indication: PARKINSON^S DISEASE
  9. RASALAS [Concomitant]
     Indication: PARKINSON^S DISEASE
  10. BENEXOL [Concomitant]
     Active Substance: CYANOCOBALAMIN\PYRIDOXINE\THIAMINE
     Indication: PARKINSON^S DISEASE
     Route: 048
     Dates: start: 20190609

REACTIONS (2)
  - Medical device site discharge [Recovered/Resolved]
  - Stoma site pain [Unknown]

NARRATIVE: CASE EVENT DATE: 20190610
